FAERS Safety Report 14290506 (Version 2)
Quarter: 2018Q4

REPORT INFORMATION
  Report Type: Spontaneous
  Country: US (occurrence: US)
  Receive Date: 20171215
  Receipt Date: 20181212
  Transmission Date: 20190204
  Serious: No
  Sender: FDA-Public Use
  Company Number: US-ENDO PHARMACEUTICALS INC-2017-004489

PATIENT
  Age: 63 Year
  Sex: Male
  Weight: 92.06 kg

DRUGS (5)
  1. TESTIM [Suspect]
     Active Substance: TESTOSTERONE
     Indication: TESTICULAR FAILURE
     Dosage: 100 MG, DAILY, 2 TUBES PER DAY ONE ON EACH SHOULDER
     Route: 062
     Dates: start: 2017, end: 2017
  2. TESTIM [Suspect]
     Active Substance: TESTOSTERONE
     Dosage: 100 MG, 1 TUBE DAILY IN THE MORNING, DAILY
     Route: 061
     Dates: start: 20151119
  3. TESTIM [Suspect]
     Active Substance: TESTOSTERONE
     Dosage: 100 MG, DAILY, 1 TUBE PER DAY ONE ON EACH SHOULDER
     Route: 062
     Dates: start: 2017
  4. TESTIM [Suspect]
     Active Substance: TESTOSTERONE
     Indication: BLOOD TESTOSTERONE DECREASED
     Dosage: 100 MG, 1 TUBE DAILY IN THE MORNING, DAILY
     Route: 061
  5. TESTIM [Suspect]
     Active Substance: TESTOSTERONE
     Dosage: 100 MG, DAILY, 2 TUBES PER DAY ONE ON EACH SHOULDER
     Route: 062
     Dates: start: 2017

REACTIONS (7)
  - Tinnitus [Recovered/Resolved]
  - Overdose [Not Recovered/Not Resolved]
  - Expired product administered [Recovered/Resolved]
  - Incorrect dose administered [Recovered/Resolved]
  - Dizziness [Recovered/Resolved]
  - Feeling abnormal [Recovered/Resolved]
  - Product packaging issue [Unknown]

NARRATIVE: CASE EVENT DATE: 2017
